FAERS Safety Report 7828386-6 (Version None)
Quarter: 2011Q4

REPORT INFORMATION
  Report Type: 
  Country: None (occurrence: None)
  Receive Date: 20111020
  Receipt Date: 20111017
  Transmission Date: 20120403
  Serious: No
  Sender: FDA-Public Use
  Company Number: US-PFIZER INC-2011229311

PATIENT
  Sex: Male
  Weight: 79 kg

DRUGS (2)
  1. CHANTIX [Suspect]
  2. CHANTIX [Suspect]
     Indication: SMOKING CESSATION THERAPY
     Dosage: 0.5 MG, 1X/DAY
     Route: 048
     Dates: start: 20110602, end: 20110101

REACTIONS (5)
  - HEADACHE [None]
  - ABNORMAL DREAMS [None]
  - HYPERHIDROSIS [None]
  - DRUG INEFFECTIVE [None]
  - NIGHTMARE [None]
